FAERS Safety Report 9498190 (Version 1)
Quarter: 2013Q3

REPORT INFORMATION
  Report Type: Spontaneous
  Country: US (occurrence: None)
  Receive Date: 20130903
  Receipt Date: 20130903
  Transmission Date: 20140515
  Serious: Yes (Hospitalization)
  Sender: FDA-Public Use
  Company Number: None

PATIENT
  Age: 60 Year
  Sex: Female
  Weight: 99 kg

DRUGS (8)
  1. XARELTO [Suspect]
     Indication: PULMONARY EMBOLISM
     Dosage: 20  QD  ORAL
     Route: 048
     Dates: start: 20130318, end: 20130828
  2. ASPIRIN [Concomitant]
  3. ATENOLOL [Concomitant]
  4. CLONIDINE [Concomitant]
  5. FAMOTIDINE [Concomitant]
  6. HYDROXYZINE [Concomitant]
  7. NOVOLOG 70/30 [Concomitant]
  8. SIMVASTATIN [Concomitant]

REACTIONS (4)
  - Pruritus [None]
  - Aspartate aminotransferase increased [None]
  - Alanine aminotransferase increased [None]
  - Blood alkaline phosphatase increased [None]
